FAERS Safety Report 24758820 (Version 1)
Quarter: 2024Q4

REPORT INFORMATION
  Report Type: Spontaneous
  Country: US (occurrence: US)
  Receive Date: 20241220
  Receipt Date: 20241220
  Transmission Date: 20250114
  Serious: No
  Sender: BAYER HEALTHCARE LLC
  Company Number: US-BAYER-2024A177863

PATIENT
  Sex: Female

DRUGS (1)
  1. MIRALAX [Suspect]
     Active Substance: POLYETHYLENE GLYCOL 3350
     Indication: Surgery
     Dosage: 1 DF
     Route: 048
     Dates: start: 20241214

REACTIONS (5)
  - Abdominal pain upper [Unknown]
  - Nausea [Unknown]
  - Product used for unknown indication [Unknown]
  - Diarrhoea [Not Recovered/Not Resolved]
  - Abnormal faeces [Unknown]

NARRATIVE: CASE EVENT DATE: 20241214
